FAERS Safety Report 9375368 (Version 1)
Quarter: 2013Q2

REPORT INFORMATION
  Report Type: Spontaneous
  Country: FR (occurrence: FR)
  Receive Date: 20130628
  Receipt Date: 20130628
  Transmission Date: 20140414
  Serious: Yes (Death)
  Sender: FDA-Public Use
  Company Number: FR-TEVA-415327ISR

PATIENT
  Age: 78 Year
  Sex: Male

DRUGS (7)
  1. FUROSEMIDE TEVA 40MG, SCORED TABLET [Suspect]
     Indication: CARDIAC FAILURE
     Dosage: 3 DOSAGE FORMS DAILY;
     Route: 048
     Dates: start: 20130530, end: 20130608
  2. FUROSEMIDE [Suspect]
     Dates: start: 20130609
  3. ESIDREX [Concomitant]
  4. KARDEGIC [Concomitant]
  5. SEROPLEX [Concomitant]
  6. CORDARONE [Concomitant]
  7. TAHOR [Concomitant]

REACTIONS (2)
  - Cardio-respiratory arrest [Fatal]
  - Somnolence [Fatal]
